FAERS Safety Report 7209495-1 (Version None)
Quarter: 2011Q1

REPORT INFORMATION
  Report Type: 
  Country: None (occurrence: None)
  Receive Date: 20110104
  Receipt Date: 20101228
  Transmission Date: 20110831
  Serious: Yes (Hospitalization, Other)
  Sender: FDA-Public Use
  Company Number: BE-GENZYME-CLOF-1001321

PATIENT
  Sex: Female
  Weight: 71 kg

DRUGS (3)
  1. EVOLTRA [Suspect]
     Indication: ACUTE LEUKAEMIA
     Dosage: 92.1 MG, QD
     Route: 042
     Dates: start: 20100713, end: 20100719
  2. CYTARABINE [Suspect]
     Indication: ACUTE LEUKAEMIA
     Dosage: 2109 MG, QDX5
     Route: 042
     Dates: start: 20100713, end: 20100717
  3. AMSACRINE [Suspect]
     Indication: ACUTE LEUKAEMIA
     Dosage: 663 MG, QDX3
     Route: 042
     Dates: start: 20100716, end: 20100718

REACTIONS (4)
  - DYSARTHRIA [None]
  - HEMIPLEGIA [None]
  - CEREBRAL ASPERGILLOSIS [None]
  - STREPTOCOCCAL INFECTION [None]
